FAERS Safety Report 23198108 (Version 1)
Quarter: 2023Q4

REPORT INFORMATION
  Report Type: Spontaneous
  Country: JP (occurrence: JP)
  Receive Date: 20231117
  Receipt Date: 20231117
  Transmission Date: 20240109
  Serious: Yes (Life-Threatening, Other)
  Sender: FDA-Public Use
  Company Number: JP-AMGEN-JPNSP2023202761

PATIENT
  Sex: Male

DRUGS (1)
  1. BLINCYTO [Suspect]
     Active Substance: BLINATUMOMAB
     Indication: B precursor type acute leukaemia
     Dosage: 9.28 MICROGRAM, 24 HOURS DRIP IV INFUSION (CENTRAL VENOUS)
     Route: 042
     Dates: start: 20230904, end: 202310

REACTIONS (2)
  - Therapeutic product effect incomplete [Not Recovered/Not Resolved]
  - Leukaemic infiltration extramedullary [Unknown]

NARRATIVE: CASE EVENT DATE: 20231001
